FAERS Safety Report 6178593-6 (Version None)
Quarter: 2009Q2

REPORT INFORMATION
  Report Type: 
  Country: None (occurrence: None)
  Receive Date: 20090504
  Receipt Date: 20080829
  Transmission Date: 20091009
  Serious: No
  Sender: FDA-Public Use
  Company Number: US-ALEXION-A200800207

PATIENT

DRUGS (2)
  1. SOLIRIS [Suspect]
     Indication: DRUG USE FOR UNKNOWN INDICATION
     Dosage: 600 MG, QWK X4 WEEKS
     Route: 042
     Dates: start: 20080701, end: 20080701
  2. SOLIRIS [Suspect]
     Dosage: 900 MG, BIWEEKLY
     Route: 042
     Dates: start: 20080101

REACTIONS (3)
  - ASTHENIA [None]
  - FATIGUE [None]
  - NAUSEA [None]
